FAERS Safety Report 4558655-7 (Version None)
Quarter: 2005Q1

REPORT INFORMATION
  Report Type: 
  Country: None (occurrence: None)
  Receive Date: 20050121
  Receipt Date: 20050121
  Transmission Date: 20050727
  Serious: Yes (Death)
  Sender: FDA-Public Use
  Company Number: None

PATIENT
  Age: 48 Year
  Sex: Female
  Weight: 72.5755 kg

DRUGS (9)
  1. LEXAPRO [Suspect]
     Indication: DEPRESSION
     Dosage: 1 DAILY PO
     Route: 048
  2. PHENTERMINE [Suspect]
     Indication: WEIGHT DECREASED
     Dosage: 1 DAILY PO
     Route: 048
  3. AVANDAMET 4/500 [Concomitant]
  4. GLYBURIDE [Concomitant]
  5. SYNTHROID [Concomitant]
  6. TEMAZAPAM [Concomitant]
  7. ESGIC-PLUS [Concomitant]
  8. LIPITOR [Concomitant]
  9. LEXAPRO [Concomitant]

REACTIONS (17)
  - ABNORMAL BEHAVIOUR [None]
  - AGITATION [None]
  - AMNESIA [None]
  - ANGER [None]
  - COMPLETED SUICIDE [None]
  - DRUG INTERACTION [None]
  - ECONOMIC PROBLEM [None]
  - FEAR [None]
  - GUN SHOT WOUND [None]
  - INSOMNIA [None]
  - MOVEMENT DISORDER [None]
  - OVERDOSE [None]
  - SALIVARY HYPERSECRETION [None]
  - SEROTONIN SYNDROME [None]
  - SPEECH DISORDER [None]
  - THINKING ABNORMAL [None]
  - TREMOR [None]
